FAERS Safety Report 4977240-6 (Version None)
Quarter: 2006Q2

REPORT INFORMATION
  Report Type: 
  Country: None (occurrence: None)
  Receive Date: 20060419
  Receipt Date: 20050930
  Transmission Date: 20061013
  Serious: Yes (Hospitalization, Other)
  Sender: FDA-Public Use
  Company Number: US-MERCK-0510USA02136

PATIENT
  Age: 68 Year
  Sex: Female
  Weight: 66 kg

DRUGS (2)
  1. VIOXX [Suspect]
     Indication: BACK PAIN
     Route: 048
     Dates: start: 19990101, end: 20040901
  2. ASPIRIN [Concomitant]
     Route: 065

REACTIONS (39)
  - ABDOMINAL PAIN [None]
  - ANGINA PECTORIS [None]
  - AORTIC VALVE STENOSIS [None]
  - CARDIAC ANEURYSM [None]
  - CARDIAC FAILURE CONGESTIVE [None]
  - CARDIAC VALVE DISEASE [None]
  - CEREBRAL INFARCTION [None]
  - CEREBROVASCULAR ACCIDENT [None]
  - CHEST PAIN [None]
  - CHRONIC OBSTRUCTIVE PULMONARY DISEASE [None]
  - COLONIC STENOSIS [None]
  - CORONARY ARTERY DISEASE [None]
  - DIVERTICULUM [None]
  - DIZZINESS [None]
  - DYSPNOEA [None]
  - FLANK PAIN [None]
  - HYPERCHOLESTEROLAEMIA [None]
  - HYPERTENSION [None]
  - INSOMNIA [None]
  - ISCHAEMIA [None]
  - LUNG NEOPLASM [None]
  - MALAISE [None]
  - MUSCLE SPASMS [None]
  - MUSCULOSKELETAL CHEST PAIN [None]
  - OSTEOPOROSIS [None]
  - PARKINSONISM [None]
  - PHLEBITIS [None]
  - POLYNEUROPATHY [None]
  - PROTEUS INFECTION [None]
  - RENAL COLIC [None]
  - RENAL DISORDER [None]
  - SPINAL DEFORMITY [None]
  - SYNCOPE [None]
  - TACHYARRHYTHMIA [None]
  - URETHRAL MEATUS STENOSIS [None]
  - URETHRAL STENOSIS [None]
  - URINARY TRACT INFECTION [None]
  - VERTIGO [None]
  - WEIGHT DECREASED [None]
